FAERS Safety Report 8582150-1 (Version None)
Quarter: 2012Q2

REPORT INFORMATION
  Report Type: 
  Country: None (occurrence: None)
  Receive Date: 20120423
  Receipt Date: 20100805
  Transmission Date: 20120825
  Serious: Yes (Other)
  Sender: FDA-Public Use
  Company Number: PHHY2010US51399

PATIENT
  Age: 35 Year
  Sex: Male
  Weight: 50 kg

DRUGS (8)
  1. VITAMIN TAB [Concomitant]
  2. BLOOD TRANSFUSION, AUXILIARY PRODUCTS (NO INGREDIENTS/SUBSTANCES) [Concomitant]
  3. LACTAID (TILACTASE) [Concomitant]
  4. CALCIUM W/VITAMIN D NOS (CALCIUM, VITAMIN D NOS) [Concomitant]
  5. ANDROGEL [Concomitant]
  6. EXJADE [Suspect]
     Indication: TRANSFUSION RELATED COMPLICATION
     Dosage: 1000 MG/DAY ORAL,  1500 MG/DAY ORAL
     Route: 048
     Dates: start: 20080101
  7. EXJADE [Suspect]
     Indication: THALASSAEMIA BETA
     Dosage: 1000 MG/DAY ORAL,  1500 MG/DAY ORAL
     Route: 048
     Dates: start: 20080101
  8. EXJADE [Suspect]
     Indication: IRON OVERLOAD
     Dosage: 1000 MG/DAY ORAL,  1500 MG/DAY ORAL
     Route: 048
     Dates: start: 20080101

REACTIONS (21)
  - WHITE BLOOD CELL COUNT INCREASED [None]
  - HAEMOGLOBIN DECREASED [None]
  - BLOOD UREA INCREASED [None]
  - NEUTROPHIL COUNT INCREASED [None]
  - RESPIRATORY RATE INCREASED [None]
  - URINARY SEDIMENT PRESENT [None]
  - LYMPHOCYTE COUNT INCREASED [None]
  - BLOOD ALBUMIN INCREASED [None]
  - EOSINOPHIL COUNT INCREASED [None]
  - FATIGUE [None]
  - MEAN CELL HAEMOGLOBIN CONCENTRATION DECREASED [None]
  - PLATELET COUNT INCREASED [None]
  - RENAL DISORDER [None]
  - MEAN CELL HAEMOGLOBIN DECREASED [None]
  - BAND NEUTROPHIL COUNT DECREASED [None]
  - MONOCYTE COUNT INCREASED [None]
  - DYSURIA [None]
  - RED CELL DISTRIBUTION WIDTH INCREASED [None]
  - HAEMOGLOBIN DISTRIBUTION WIDTH INCREASED [None]
  - BLOOD BILIRUBIN INCREASED [None]
  - BLOOD PRESSURE DECREASED [None]
